FAERS Safety Report 4516299-7 (Version None)
Quarter: 2004Q4

REPORT INFORMATION
  Report Type: 
  Country: None (occurrence: None)
  Receive Date: 20041202
  Receipt Date: 20041122
  Transmission Date: 20050328
  Serious: Yes (Other)
  Sender: FDA-Public Use
  Company Number: BE-JNJFOC-20041106146

PATIENT
  Age: 60 Year
  Sex: Male

DRUGS (12)
  1. PROPULSID [Suspect]
     Indication: DIABETIC GASTROPARESIS
     Route: 049
  2. INSULIN [Concomitant]
  3. LASIX [Concomitant]
  4. NEXIUM [Concomitant]
     Indication: REFLUX OESOPHAGITIS
     Route: 049
  5. APROVEL [Concomitant]
     Route: 049
  6. METOPROLOL SUCCINATE [Concomitant]
     Route: 049
  7. ADALAT [Concomitant]
     Route: 049
  8. EUTHYROX [Concomitant]
     Indication: HYPOTHYROIDISM
     Route: 049
  9. ZOCOR [Concomitant]
     Route: 049
  10. PLAVIX [Concomitant]
     Indication: THROMBOSIS
     Route: 049
  11. NITRODERM [Concomitant]
     Route: 049
  12. LEVOPRAID [Concomitant]
     Route: 049

REACTIONS (1)
  - ELECTROCARDIOGRAM QT PROLONGED [None]
